FAERS Safety Report 10039905 (Version 1)
Quarter: 2014Q1

REPORT INFORMATION
  Report Type: Spontaneous
  Country: FR (occurrence: FR)
  Receive Date: 20140326
  Receipt Date: 20140326
  Transmission Date: 20141002
  Serious: Yes (Hospitalization, Disabling, Other)
  Sender: FDA-Public Use
  Company Number: FR-PFIZER INC-2014082818

PATIENT
  Age: 55 Year
  Sex: Male

DRUGS (6)
  1. ZOLOFT [Suspect]
     Dosage: UNK
     Route: 048
     Dates: start: 2013, end: 20131015
  2. LYSANXIA [Suspect]
     Dosage: 30-50MG, DAILY
     Route: 048
     Dates: start: 20130925
  3. BACLOFEN [Suspect]
     Dosage: 10 DF, DAILY
     Route: 048
     Dates: start: 20130911
  4. BACLOFEN [Suspect]
     Dosage: DECREASED DOSAGE
     Route: 048
  5. AOTAL [Concomitant]
     Dosage: UNK
  6. SERESTA [Concomitant]
     Dosage: 200 MG, UNK
     Dates: start: 20130910, end: 20130925

REACTIONS (5)
  - Alcohol withdrawal syndrome [Unknown]
  - Depression [Not Recovered/Not Resolved]
  - Myalgia [Unknown]
  - Anxiety [Unknown]
  - Fatigue [Unknown]
